FAERS Safety Report 24443782 (Version 5)
Quarter: 2024Q4

REPORT INFORMATION
  Report Type: Spontaneous
  Country: CA (occurrence: CA)
  Receive Date: 20241016
  Receipt Date: 20241224
  Transmission Date: 20250114
  Serious: Yes (Hospitalization, Other)
  Sender: PFIZER
  Company Number: CA-PFIZER INC-PV202400088586

PATIENT
  Age: 60 Year
  Sex: Female
  Weight: 68.027 kg

DRUGS (9)
  1. ZIRABEV [Suspect]
     Active Substance: BEVACIZUMAB-BVZR
     Indication: Glioblastoma
     Dosage: 10 MG/KG Q2WEEKS
     Route: 042
     Dates: start: 20240704
  2. ZIRABEV [Suspect]
     Active Substance: BEVACIZUMAB-BVZR
     Dosage: 10 MG/KG Q2WEEKS
     Route: 042
     Dates: start: 20240704
  3. ZIRABEV [Suspect]
     Active Substance: BEVACIZUMAB-BVZR
     Dosage: 10 MG/KG Q2WEEKS
     Route: 042
     Dates: start: 20240716, end: 20240716
  4. ZIRABEV [Suspect]
     Active Substance: BEVACIZUMAB-BVZR
     Dosage: 10 MG/KG Q2WEEKS
     Route: 042
     Dates: start: 20240716, end: 20240716
  5. ZIRABEV [Suspect]
     Active Substance: BEVACIZUMAB-BVZR
     Dosage: 10 MG/KG Q2WEEKS
     Route: 042
     Dates: start: 20240924, end: 20240924
  6. ZIRABEV [Suspect]
     Active Substance: BEVACIZUMAB-BVZR
     Dosage: 10 MG/KG Q2WEEKS
     Route: 042
     Dates: start: 20241008
  7. ZIRABEV [Suspect]
     Active Substance: BEVACIZUMAB-BVZR
     Dosage: 690 MG Q2WEEKS (IT^S SUPPOSED TO BE 715 MG, 10 MG/KG ON THE ENROLMENT FORM)
     Route: 042
     Dates: start: 20241118
  8. ZIRABEV [Suspect]
     Active Substance: BEVACIZUMAB-BVZR
     Dosage: 690 MG Q2WEEKS
     Route: 042
     Dates: start: 20241202
  9. ZIRABEV [Suspect]
     Active Substance: BEVACIZUMAB-BVZR
     Dosage: 690 MG Q2WEEKS
     Route: 042
     Dates: start: 20241216

REACTIONS (7)
  - Internal haemorrhage [Unknown]
  - Seizure [Recovering/Resolving]
  - Tumour haemorrhage [Recovering/Resolving]
  - Hypertension [Unknown]
  - Stress [Unknown]
  - Weight increased [Unknown]
  - White coat hypertension [Unknown]

NARRATIVE: CASE EVENT DATE: 20240101
